FAERS Safety Report 22129158 (Version 1)
Quarter: 2023Q1

REPORT INFORMATION
  Report Type: Spontaneous
  Country: US (occurrence: US)
  Receive Date: 20230323
  Receipt Date: 20230323
  Transmission Date: 20230417
  Serious: No
  Sender: FDA-Public Use
  Company Number: US-SA-2023SA086297

PATIENT
  Sex: Female
  Weight: 163 kg

DRUGS (1)
  1. DUPIXENT [Suspect]
     Active Substance: DUPILUMAB
     Indication: Pustular psoriasis
     Dosage: UNK

REACTIONS (1)
  - Product use in unapproved indication [Unknown]
